FAERS Safety Report 14803779 (Version 2)
Quarter: 2018Q2

REPORT INFORMATION
  Report Type: Spontaneous
  Country: IN (occurrence: IN)
  Receive Date: 20180425
  Receipt Date: 20180430
  Transmission Date: 20180711
  Serious: Yes (Death, Other)
  Sender: FDA-Public Use
  Company Number: IN-B.I. PHARMACEUTICALS,INC./RIDGEFIELD-2018-BI-022250

PATIENT
  Age: 77 Year
  Sex: Male

DRUGS (1)
  1. CYENDIV [Suspect]
     Active Substance: NINTEDANIB
     Indication: IDIOPATHIC PULMONARY FIBROSIS
     Route: 065
     Dates: start: 20180419, end: 20180423

REACTIONS (3)
  - Respiratory failure [Fatal]
  - Tuberculosis [Fatal]
  - Idiopathic pulmonary fibrosis [Fatal]
